FAERS Safety Report 9803380 (Version 1)
Quarter: 2014Q1

REPORT INFORMATION
  Report Type: Spontaneous
  Country: HR (occurrence: None)
  Receive Date: 20140103
  Receipt Date: 20140103
  Transmission Date: 20141002
  Serious: Yes (Other)
  Sender: FDA-Public Use
  Company Number: NL01PV13.34948

PATIENT
  Age: 77 Year
  Sex: Male
  Weight: 78 kg

DRUGS (4)
  1. TAMSULOSIN CAPSULES [Suspect]
     Indication: BENIGN PROSTATIC HYPERPLASIA
     Route: 048
     Dates: start: 20131128, end: 20131210
  2. LANITOP (METIDIIGOXIN) [Concomitant]
  3. MARTEFARIN (WARFARIN SODIUM) [Concomitant]
  4. RYTMONORM (PROPAFENONE HYDROCHLORIDE) [Concomitant]

REACTIONS (5)
  - Vertigo [None]
  - Vomiting [None]
  - Hypotension [None]
  - Syncope [None]
  - Nausea [None]
